FAERS Safety Report 13747632 (Version 3)
Quarter: 2017Q3

REPORT INFORMATION
  Report Type: Spontaneous
  Country: US (occurrence: US)
  Receive Date: 20170712
  Receipt Date: 20170921
  Transmission Date: 20171127
  Serious: Yes (Other)
  Sender: FDA-Public Use
  Company Number: US-JAZZ-2017-US-008974

PATIENT
  Age: 58 Year
  Sex: Female

DRUGS (1)
  1. XYREM [Suspect]
     Active Substance: SODIUM OXYBATE
     Indication: NARCOLEPSY
     Dosage: UNK
     Route: 048

REACTIONS (7)
  - Blood pressure increased [Recovered/Resolved]
  - Myoclonus [Recovered/Resolved]
  - Bradycardia [Recovered/Resolved]
  - Lethargy [Recovered/Resolved]
  - Hallucination [Recovered/Resolved]
  - Somnolence [Recovered/Resolved]
  - Intentional product misuse [Unknown]

NARRATIVE: CASE EVENT DATE: 20170608
